FAERS Safety Report 4358179-6 (Version None)
Quarter: 2004Q2

REPORT INFORMATION
  Report Type: 
  Country: None (occurrence: None)
  Receive Date: 20040511
  Receipt Date: 20040430
  Transmission Date: 20050107
  Serious: Yes (Death, Other)
  Sender: FDA-Public Use
  Company Number: 2004015518

PATIENT
  Sex: Male

DRUGS (3)
  1. NEURONTIN [Suspect]
     Indication: HERPES ZOSTER
     Dosage: 600 MG(DAILY), ORAL
     Route: 048
     Dates: start: 20000101
  2. DIURETICS (DIURETICS) [Concomitant]
  3. ALL OTEHR THERAPEUTIC PRODUCTS (ALL OTHER THERAPEUTIC PRODUCTS) [Concomitant]

REACTIONS (10)
  - BLADDER DISORDER [None]
  - CHRONIC OBSTRUCTIVE AIRWAYS DISEASE [None]
  - CONDITION AGGRAVATED [None]
  - DISEASE RECURRENCE [None]
  - DYSPEPSIA [None]
  - EMPHYSEMA [None]
  - GASTRIC DISORDER [None]
  - LUNG NEOPLASM MALIGNANT [None]
  - PAIN [None]
  - PRURITUS [None]
